FAERS Safety Report 5526617-9 (Version None)
Quarter: 2007Q4

REPORT INFORMATION
  Report Type: 
  Country: None (occurrence: None)
  Receive Date: 20071127
  Receipt Date: 20071123
  Transmission Date: 20080405
  Serious: Yes (Death, Life-Threatening, Other)
  Sender: FDA-Public Use
  Company Number: FR-BRISTOL-MYERS SQUIBB COMPANY-13953542

PATIENT
  Age: 85 Year
  Sex: Male

DRUGS (3)
  1. COUMADIN [Suspect]
     Indication: ATRIAL FIBRILLATION
     Dosage: DOSE WAS FIRST DECREASED TO 1/4,1/2,1/2 AND THEN COUMADINE WAS SWITCHED BY ENOXAPARIN 0.4(2 MG/DAY).
     Dates: start: 20070601, end: 20071007
  2. CORDARONE [Concomitant]
  3. AMLOR [Concomitant]

REACTIONS (6)
  - CEREBRAL HAEMORRHAGE [None]
  - FALL [None]
  - INFECTION [None]
  - INTERNATIONAL NORMALISED RATIO INCREASED [None]
  - RESPIRATORY DISORDER [None]
  - SUBARACHNOID HAEMORRHAGE [None]
